FAERS Safety Report 25722710 (Version 1)
Quarter: 2025Q3

REPORT INFORMATION
  Report Type: Spontaneous
  Country: US (occurrence: US)
  Receive Date: 20250825
  Receipt Date: 20250825
  Transmission Date: 20251020
  Serious: No
  Sender: LUPIN
  Company Number: US-LUPIN PHARMACEUTICALS INC.-2025-07462

PATIENT

DRUGS (1)
  1. AMLODIPINE BESYLATE [Suspect]
     Active Substance: AMLODIPINE BESYLATE
     Indication: Product used for unknown indication
     Dosage: QD (HALF OF THE PILL TWICE A DAY)
     Route: 065

REACTIONS (3)
  - Blood pressure fluctuation [Unknown]
  - Wrong technique in product usage process [Unknown]
  - Product size issue [Unknown]
